FAERS Safety Report 21962801 (Version 1)
Quarter: 2023Q1

REPORT INFORMATION
  Report Type: Spontaneous
  Country: CA (occurrence: CA)
  Receive Date: 20230207
  Receipt Date: 20230207
  Transmission Date: 20230417
  Serious: Yes (Hospitalization, Other)
  Sender: FDA-Public Use
  Company Number: CA-002147023-NVSC2023CA022483

PATIENT
  Age: 64 Year
  Sex: Female

DRUGS (2)
  1. MEROPENEM [Suspect]
     Active Substance: MEROPENEM
     Indication: Antibiotic therapy
     Dosage: UNK
     Route: 042
  2. TOBRAMYCIN [Suspect]
     Active Substance: TOBRAMYCIN
     Indication: Antibiotic therapy
     Dosage: UNK
     Route: 065

REACTIONS (8)
  - Brain abscess [Recovered/Resolved]
  - Cardiac tamponade [Recovered/Resolved]
  - Cardiogenic shock [Recovered/Resolved]
  - Cerebellar infarction [Recovered/Resolved]
  - Cerebral infarction [Recovered/Resolved]
  - Drug resistance [Recovered/Resolved]
  - Nystagmus [Recovered/Resolved]
  - Vertigo [Recovered/Resolved]
